FAERS Safety Report 13983005 (Version 1)
Quarter: 2017Q3

REPORT INFORMATION
  Report Type: Spontaneous
  Country: FI (occurrence: FI)
  Receive Date: 20170918
  Receipt Date: 20170918
  Transmission Date: 20171128
  Serious: Yes (Other)
  Sender: FDA-Public Use
  Company Number: FI-BAYER-2017-163206

PATIENT
  Age: 30 Year
  Sex: Female

DRUGS (3)
  1. SALAZOPYRINE [Concomitant]
     Active Substance: SULFASALAZINE
     Indication: ARTHRITIS REACTIVE
     Dosage: 1000 MG, BID
     Route: 048
     Dates: start: 20170601
  2. CIPROXIN 500 MG [Suspect]
     Active Substance: CIPROFLOXACIN
     Indication: URINARY TRACT INFECTION
     Dosage: 500 MG, BID
     Route: 048
     Dates: start: 20170813, end: 20170814
  3. SELEXID [Concomitant]
     Active Substance: AMDINOCILLIN PIVOXIL HYDROCHLORIDE
     Indication: URINARY TRACT INFECTION

REACTIONS (4)
  - Palpitations [Recovered/Resolved]
  - Fear of death [Recovered/Resolved]
  - Fear of disease [Recovered/Resolved]
  - Nightmare [Recovered/Resolved]

NARRATIVE: CASE EVENT DATE: 20170814
